FAERS Safety Report 5320867-2 (Version None)
Quarter: 2007Q2

REPORT INFORMATION
  Report Type: 
  Country: None (occurrence: None)
  Receive Date: 20070504
  Receipt Date: 20070424
  Transmission Date: 20071010
  Serious: Yes (Hospitalization)
  Sender: FDA-Public Use
  Company Number: US018352

PATIENT
  Age: 57 Year
  Sex: Female

DRUGS (9)
  1. TRISENOX [Suspect]
     Indication: ACUTE PROMYELOCYTIC LEUKAEMIA
     Dosage: 8.475 MG QD INTRAVENOUS DRIP
     Route: 041
     Dates: start: 20060602, end: 20060701
  2. TRISENOX [Suspect]
     Indication: ACUTE PROMYELOCYTIC LEUKAEMIA
     Dosage: 8.25 MG QD INTRAVENOUS DRIP
     Route: 041
     Dates: start: 20060725, end: 20060818
  3. TRISENOX [Suspect]
     Indication: ACUTE PROMYELOCYTIC LEUKAEMIA
     Dosage: 8.25 MG QD INTRAVENOUS DRIP
     Route: 041
     Dates: start: 20060912, end: 20061006
  4. RANITIDINE HYDROCHLORIDE [Concomitant]
  5. ALLOPURINOL [Concomitant]
  6. PRAVASTATIN SODIUM [Concomitant]
  7. SULFAMETHOXAZOLE AND TRIMETHOPRIM [Concomitant]
  8. BROTIZOLAM [Concomitant]
  9. ETIZOLAM [Concomitant]

REACTIONS (7)
  - ALANINE AMINOTRANSFERASE INCREASED [None]
  - ASPARTATE AMINOTRANSFERASE INCREASED [None]
  - BLOOD BILIRUBIN INCREASED [None]
  - ELECTROCARDIOGRAM QT PROLONGED [None]
  - HEPATIC FUNCTION ABNORMAL [None]
  - HERPES ZOSTER [None]
  - WHITE BLOOD CELL COUNT DECREASED [None]
